FAERS Safety Report 5794991-4 (Version None)
Quarter: 2008Q2

REPORT INFORMATION
  Report Type: 
  Country: None (occurrence: None)
  Receive Date: 20080630
  Receipt Date: 20080327
  Transmission Date: 20081010
  Serious: No
  Sender: FDA-Public Use
  Company Number: US-BRISTOL-MYERS SQUIBB COMPANY-14012751

PATIENT
  Age: 60 Year
  Sex: Female

DRUGS (10)
  1. ORENCIA [Suspect]
     Indication: PSORIASIS
     Route: 042
     Dates: start: 20070910, end: 20071212
  2. ORENCIA [Suspect]
     Indication: ARTHRITIS
     Route: 042
     Dates: start: 20070910, end: 20071212
  3. PREDNISONE [Concomitant]
     Route: 048
  4. PREMARIN [Concomitant]
     Route: 048
  5. LUNESTA [Concomitant]
     Route: 048
  6. CELEBREX [Concomitant]
     Route: 048
  7. ULTRAM [Concomitant]
     Route: 048
  8. HYDROCHLOROTHIAZIDE [Concomitant]
  9. LISINOPRIL [Concomitant]
     Route: 048
  10. LORTAB [Concomitant]
     Dosage: PRN
     Route: 048

REACTIONS (5)
  - PHARYNGEAL OEDEMA [None]
  - PRURITUS [None]
  - RASH [None]
  - THROAT IRRITATION [None]
  - URTICARIA [None]
